FAERS Safety Report 8848517 (Version 1)
Quarter: 2012Q4

REPORT INFORMATION
  Report Type: 
  Country: BR (occurrence: BR)
  Receive Date: 20121019
  Receipt Date: 20121019
  Transmission Date: 20130627
  Serious: Yes (Death, Other)
  Sender: FDA-Public Use
  Company Number: BR-AMGEN-BRASP2012066341

PATIENT
  Age: 77 Year
  Sex: Female
  Weight: 49 kg

DRUGS (2)
  1. ENBREL [Suspect]
     Indication: RHEUMATOID ARTHRITIS
     Dosage: 50 mg, 1x/week
     Route: 058
  2. ALENIA [Concomitant]
     Dosage: UNK

REACTIONS (2)
  - Cardio-respiratory arrest [Fatal]
  - Acute respiratory failure [Unknown]
